FAERS Safety Report 17182615 (Version 1)
Quarter: 2019Q4

REPORT INFORMATION
  Report Type: Spontaneous
  Country: GB (occurrence: GB)
  Receive Date: 20191220
  Receipt Date: 20191220
  Transmission Date: 20200122
  Serious: Yes (Hospitalization)
  Sender: FDA-Public Use
  Company Number: GB-ACCORD-165726

PATIENT
  Age: 93 Year
  Sex: Female

DRUGS (11)
  1. ACETYLSALICYLIC ACID [Concomitant]
     Active Substance: ASPIRIN
  2. TEMAZEPAM. [Concomitant]
     Active Substance: TEMAZEPAM
     Dosage: AT NIGHT NOT IN TAKES MOST NIGHTS
  3. PREDNISOLONE. [Concomitant]
     Active Substance: PREDNISOLONE
  4. METHOTREXATE. [Suspect]
     Active Substance: METHOTREXATE
     Indication: RHEUMATOID ARTHRITIS
     Dosage: FRIDAYS HOLD WHILE INFECTION.
  5. LANSOPRAZOLE. [Concomitant]
     Active Substance: LANSOPRAZOLE
     Dosage: MORNING
  6. LEVOTHYROXINE. [Concomitant]
     Active Substance: LEVOTHYROXINE
     Dosage: EACH MORNING BEFORE BREAKFAST
  7. ATORVASTATIN [Concomitant]
     Active Substance: ATORVASTATIN
  8. LOSARTAN. [Concomitant]
     Active Substance: LOSARTAN
     Dosage: 25MG TAKE ONE DAILY. 50MG ONE TO BE TAKEN EACH DAY.
  9. FOLIC ACID. [Concomitant]
     Active Substance: FOLIC ACID
  10. CELIPROLOL [Concomitant]
     Active Substance: CELIPROLOL
     Dosage: MORNING
  11. AMLODIPINE [Concomitant]
     Active Substance: AMLODIPINE BESYLATE

REACTIONS (2)
  - Bone marrow failure [Recovering/Resolving]
  - Diarrhoea [Unknown]
